FAERS Safety Report 6503618-5 (Version None)
Quarter: 2009Q4

REPORT INFORMATION
  Report Type: 
  Country: None (occurrence: None)
  Receive Date: 20091217
  Receipt Date: 20091208
  Transmission Date: 20100525
  Serious: Yes (Other)
  Sender: FDA-Public Use
  Company Number: US-JNJCH-2009032118

PATIENT
  Age: 41 Year
  Sex: Female
  Weight: 56.7 kg

DRUGS (1)
  1. LISTERINE TOOTH DEFENSE [Suspect]
     Indication: DRUG USE FOR UNKNOWN INDICATION
     Dosage: TEXT:UNSPECIFIED 3 OR 4 TIMES DAILY
     Route: 048

REACTIONS (6)
  - APPLICATION SITE DISCOLOURATION [None]
  - DENTAL CARE [None]
  - DENTAL CARIES [None]
  - ENDODONTIC PROCEDURE [None]
  - INAPPROPRIATE SCHEDULE OF DRUG ADMINISTRATION [None]
  - MEDICATION RESIDUE [None]
